FAERS Safety Report 8448100 (Version 6)
Quarter: 2012Q4

REPORT INFORMATION
  Report Type: Report from Study
  Country: JP (occurrence: JP)
  Receive Date: 20120308
  Receipt Date: 20121016
  Transmission Date: 20130627
  Serious: Yes (Other)
  Sender: FDA-Public Use
  Company Number: JP-JNJFOC-20120300677

PATIENT
  Age: 63 Year
  Sex: Female
  Weight: 33 kg

DRUGS (16)
  1. STELARA [Suspect]
     Indication: PSORIASIS
     Route: 058
     Dates: start: 20110805
  2. STELARA [Suspect]
     Indication: PSORIASIS
     Route: 058
     Dates: start: 20110906
  3. STELARA [Suspect]
     Indication: PSORIASIS
     Route: 058
     Dates: start: 20120313
  4. STELARA [Suspect]
     Indication: PSORIASIS
     Route: 058
     Dates: start: 20120516
  5. STELARA [Suspect]
     Indication: PSORIASIS
     Route: 058
     Dates: start: 20120808
  6. STELARA [Suspect]
     Indication: PSORIASIS
     Route: 058
     Dates: start: 20111129
  7. FULMETA [Concomitant]
     Indication: PSORIASIS
     Route: 061
  8. FULMETA [Concomitant]
     Indication: PSORIASIS
     Route: 061
  9. OXAROL [Concomitant]
     Indication: PSORIASIS
     Route: 061
  10. HYDROCORTISONE BUTYRATE [Concomitant]
     Indication: PSORIASIS
     Route: 061
     Dates: end: 20120313
  11. HEPARINOID [Concomitant]
     Indication: PSORIASIS
     Route: 061
  12. HEPARINOID [Concomitant]
     Indication: PSORIASIS
     Route: 061
  13. ALLELOCK [Concomitant]
     Indication: PSORIASIS
     Route: 048
  14. FERRIC  PYROPHOSPHATE [Concomitant]
     Indication: IRON DEFICIENCY ANAEMIA
     Route: 048
     Dates: start: 20120221
  15. FERRIC  PYROPHOSPHATE [Concomitant]
     Indication: IRON DEFICIENCY ANAEMIA
     Route: 048
  16. LOCOID [Concomitant]
     Indication: PSORIASIS
     Dates: end: 20120313

REACTIONS (1)
  - Iron deficiency anaemia [Recovered/Resolved]
